FAERS Safety Report 7257013-4 (Version None)
Quarter: 2011Q1

REPORT INFORMATION
  Report Type: 
  Country: None (occurrence: None)
  Receive Date: 20110129
  Receipt Date: 20100729
  Transmission Date: 20110831
  Serious: No
  Sender: FDA-Public Use
  Company Number: US-ABBOTT-10P-163-0660708-00

PATIENT
  Age: 24 Year
  Sex: Female

DRUGS (11)
  1. AMITRIPTYLINE HCL [Concomitant]
     Indication: INSOMNIA
  2. FISH OIL [Concomitant]
     Indication: PRODUCT USED FOR UNKNOWN INDICATION
  3. FLONASE [Concomitant]
     Indication: HYPERSENSITIVITY
  4. FOLIC ACID [Concomitant]
     Indication: PRODUCT USED FOR UNKNOWN INDICATION
  5. BIRTH CONTROL [Concomitant]
     Indication: PRODUCT USED FOR UNKNOWN INDICATION
  6. SUMATRIPTIN [Concomitant]
     Indication: MIGRAINE
  7. ASACOL [Concomitant]
     Indication: CROHN'S DISEASE
  8. MULTI-VITAMIN [Concomitant]
     Indication: PRODUCT USED FOR UNKNOWN INDICATION
  9. HFA INHALER [Concomitant]
     Indication: ASTHMA
  10. HUMIRA [Suspect]
     Indication: CROHN'S DISEASE
     Dates: start: 20100522
  11. MERCAPTOPURINE [Concomitant]
     Indication: CROHN'S DISEASE

REACTIONS (6)
  - HYPERSOMNIA [None]
  - MIGRAINE [None]
  - SPUTUM DISCOLOURED [None]
  - INJECTION SITE HAEMORRHAGE [None]
  - THROAT IRRITATION [None]
  - NASOPHARYNGITIS [None]
